FAERS Safety Report 8389654 (Version 5)
Quarter: 2012Q4

REPORT INFORMATION
  Report Type: 
  Country: US (occurrence: US)
  Receive Date: 20120203
  Receipt Date: 20120928
  Transmission Date: 20130627
  Serious: Yes (Hospitalization, Other)
  Sender: FDA-Public Use
  Company Number: US-009507513-1202USA00215

PATIENT

DRUGS (7)
  1. FOSAMAX [Suspect]
     Indication: OSTEOPOROSIS
     Dosage: 70 mg, qw
     Route: 048
     Dates: start: 20010220, end: 200810
  2. FOSAMAX [Suspect]
     Indication: OSTEOPENIA
  3. ALENDRONATE SODIUM [Suspect]
     Indication: OSTEOPOROSIS
     Dosage: 70 mg, qw
     Dates: start: 20081019, end: 201104
  4. ALENDRONATE SODIUM [Suspect]
     Indication: OSTEOPENIA
  5. CENTRUM (MINERALS (UNSPECIFIED) (+) VITAMINS (UNSPECIFIED)) [Concomitant]
     Dosage: UNK
  6. VITAMIN D (UNSPECIFIED) [Concomitant]
  7. HYDROCHLOROTHIAZIDE [Concomitant]
     Indication: HYPERTENSION

REACTIONS (19)
  - Femur fracture [Unknown]
  - Fracture nonunion [Unknown]
  - Medical device removal [Not Recovered/Not Resolved]
  - Fall [Unknown]
  - Pubis fracture [Unknown]
  - Hand fracture [Unknown]
  - Oral candidiasis [Recovered/Resolved]
  - Fracture nonunion [Unknown]
  - Asthma [Unknown]
  - Vitamin D deficiency [Unknown]
  - Obesity [Unknown]
  - Road traffic accident [Unknown]
  - Vulvovaginitis [Unknown]
  - Osteoarthritis [Unknown]
  - Hypercholesterolaemia [Unknown]
  - Hyperkalaemia [Unknown]
  - Hypercalcaemia [Unknown]
  - Back pain [Unknown]
  - Gastrooesophageal reflux disease [Unknown]
